FAERS Safety Report 8414472-9 (Version None)
Quarter: 2012Q2

REPORT INFORMATION
  Report Type: 
  Country: None (occurrence: None)
  Receive Date: 20120605
  Receipt Date: 20120525
  Transmission Date: 20120825
  Serious: Yes (Other)
  Sender: FDA-Public Use
  Company Number: GB-B.I. PHARMACEUTICALS,INC./RIDGEFIELD-2012-BP-11356YA

PATIENT
  Sex: Male
  Weight: 62 kg

DRUGS (8)
  1. TAMSULOSIN HCL [Suspect]
     Indication: URINARY TRACT DISORDER
     Dosage: 400 MG
     Route: 048
     Dates: start: 20120501, end: 20120515
  2. TOLTERODINE TARTRATE [Suspect]
     Indication: URINARY TRACT DISORDER
     Dosage: 4 MG
     Route: 048
     Dates: start: 20111110, end: 20120312
  3. BISOPROLOL FUMARATE AND HYDROCHLOROTHIAZIDE [Concomitant]
     Indication: MYOCARDIAL INFARCTION
     Dates: start: 20040101
  4. RAMIPRIL [Concomitant]
     Dosage: 10 MG
     Dates: start: 20010101
  5. VESICARE [Suspect]
     Indication: URINARY TRACT DISORDER
     Dosage: 10 MG
     Route: 065
     Dates: start: 20120501
  6. VESICARE [Suspect]
     Route: 048
     Dates: end: 20120513
  7. SIMVASTATIN [Concomitant]
     Dosage: 10 MG
     Route: 048
     Dates: start: 20010101
  8. ASPIRIN (CALCIUM CARBONATE, CITRIC ACID) [Concomitant]
     Dosage: 75 MG
     Dates: start: 20010101

REACTIONS (4)
  - DISORIENTATION [None]
  - FALL [None]
  - CONFUSIONAL STATE [None]
  - SINUS CONGESTION [None]
